FAERS Safety Report 12993782 (Version 1)
Quarter: 2016Q4

REPORT INFORMATION
  Report Type: Spontaneous
  Country: US (occurrence: US)
  Receive Date: 20161201
  Receipt Date: 20161201
  Transmission Date: 20170207
  Serious: Yes (Other)
  Sender: FDA-Public Use
  Company Number: None

PATIENT
  Age: 59 Year
  Sex: Female
  Weight: 63.56 kg

DRUGS (31)
  1. DHEA [Concomitant]
     Active Substance: PRASTERONE
  2. OSTINOL ADVANCED 300 [Concomitant]
  3. PROBIOTICS [Concomitant]
     Active Substance: PROBIOTICS NOS
  4. GLUTATHIONE [Concomitant]
     Active Substance: GLUTATHIONE
  5. CILANTRO [Concomitant]
  6. ADRENAL NATURAL GLANDULAR [Concomitant]
  7. ESTROVAN [Concomitant]
  8. OSTEOPRIME BONE FORMULA [Concomitant]
  9. CHLORELLA VULGARIS [Concomitant]
     Active Substance: CHLORELLA VULGARIS
  10. GADOLINIUM [Suspect]
     Active Substance: GADOLINIUM
  11. LORAZEPAM. [Concomitant]
     Active Substance: LORAZEPAM
  12. L-GLUTAMINE /00503401/ [Concomitant]
     Active Substance: GLUTAMINE
  13. LIVER NATURAL GLANDULAR [Concomitant]
  14. N-ACETYLCAMOCINE AND DR SCHULTZ INTESTINAL FORMULA #2 [Concomitant]
  15. LEVOTHYROXINE. [Concomitant]
     Active Substance: LEVOTHYROXINE
  16. MULTIVITAMIN/MINERAL [Concomitant]
  17. EVENING PRIMROSE OIL [Concomitant]
     Active Substance: EVENING PRIMROSE OIL
  18. BETAINE HYDROCHLORIDE [Concomitant]
     Active Substance: BETAINE HYDROCHLORIDE
  19. ALPHA LIPOIC ACID [Concomitant]
     Active Substance: .ALPHA.-LIPOIC ACID
  20. VITAMIN B COMPLEX [Concomitant]
     Active Substance: CYANOCOBALAMIN\DEXPANTHENOL\NIACINAMIDE\PYRIDOXINE HYDROCHLORIDE\RIBOFLAVIN 5^-PHOSPHATE SODIUM\THIAMINE HYDROCHLORIDE\VITAMIN B COMPLEX
  21. DIGESTIVE EZYMES [Concomitant]
  22. MSM [Concomitant]
     Active Substance: DIMETHYL SULFONE
  23. GLUCOSAMINE AND CHONDROITON [Concomitant]
  24. COQ10 [Concomitant]
     Active Substance: UBIDECARENONE
  25. IODINE. [Concomitant]
     Active Substance: IODINE
  26. VITAMIN D [Concomitant]
     Active Substance: CHOLECALCIFEROL
  27. SELENIUM [Concomitant]
     Active Substance: SELENIUM
  28. VITAMIN B12 [Concomitant]
     Active Substance: CYANOCOBALAMIN
  29. VITAMIN C [Concomitant]
     Active Substance: ASCORBIC ACID
  30. RIBES NIGRUM [Concomitant]
  31. N-ACETYLCYSTINE [Concomitant]
     Active Substance: ACETYLCYSTEINE

REACTIONS (13)
  - Eye disorder [None]
  - Insomnia [None]
  - Feeling abnormal [None]
  - Anxiety [None]
  - Gastrointestinal disorder [None]
  - Burning sensation [None]
  - Cystitis [None]
  - Metal poisoning [None]
  - Contrast media reaction [None]
  - Bone pain [None]
  - Pelvic pain [None]
  - Depression [None]
  - Drug screen positive [None]

NARRATIVE: CASE EVENT DATE: 20111030
